FAERS Safety Report 4513810-7 (Version None)
Quarter: 2004Q4

REPORT INFORMATION
  Report Type: 
  Country: None (occurrence: None)
  Receive Date: 20041130
  Receipt Date: 20040908
  Transmission Date: 20050328
  Serious: No
  Sender: FDA-Public Use
  Company Number: US-GLAXOSMITHKLINE-A0524899A

PATIENT
  Age: 64 Year
  Sex: Female
  Weight: 120 kg

DRUGS (9)
  1. WELLBUTRIN [Suspect]
     Indication: ILL-DEFINED DISORDER
     Dosage: 150MG UNKNOWN
     Route: 048
     Dates: start: 20030901
  2. PAXIL [Suspect]
     Indication: DEPRESSION
     Dosage: 1TAB IN THE MORNING
     Route: 048
  3. HUMULIN N [Concomitant]
     Dosage: 35UNIT IN THE MORNING
     Route: 058
  4. ANTIHYPERTENSIVES [Concomitant]
  5. PREDNISONE [Concomitant]
     Indication: DEPRESSION
     Route: 048
  6. PLAQUENIL [Concomitant]
     Dosage: 200MG PER DAY
     Route: 048
  7. ACIPHEX [Concomitant]
     Dosage: 20MG AT NIGHT
     Route: 048
  8. DETROL LA [Concomitant]
     Indication: INCONTINENCE
  9. LASIX [Concomitant]
     Indication: FLUID RETENTION
     Dosage: 40MG PER DAY
     Route: 048

REACTIONS (1)
  - CHEST DISCOMFORT [None]
